FAERS Safety Report 6826829-8 (Version None)
Quarter: 2010Q2

REPORT INFORMATION
  Report Type: 
  Country: None (occurrence: None)
  Receive Date: 20100520
  Receipt Date: 20090416
  Transmission Date: 20101027
  Serious: Yes (Other)
  Sender: FDA-Public Use
  Company Number: 2009199720

PATIENT
  Age: 57 Year
  Sex: Female
  Weight: 74 kg

DRUGS (3)
  1. PROVERA [Suspect]
     Indication: MENOPAUSE
     Dosage: 5 MG
     Dates: start: 19940601, end: 19971101
  2. PREMARIN [Suspect]
     Indication: MENOPAUSE
     Dosage: 0.625 MG
     Dates: start: 19940601, end: 19971101
  3. PREMPRO [Suspect]
     Indication: MENOPAUSE
     Dosage: 0.625 MG, 2.5 MG
     Dates: start: 19971101, end: 20011101

REACTIONS (1)
  - BREAST CANCER [None]
